FAERS Safety Report 9834979 (Version 2)
Quarter: 2014Q1

REPORT INFORMATION
  Report Type: Spontaneous
  Country: US (occurrence: US)
  Receive Date: 20140122
  Receipt Date: 20140313
  Transmission Date: 20141002
  Serious: No
  Sender: FDA-Public Use
  Company Number: US-009507513-1401USA009962

PATIENT
  Age: 71 Year
  Sex: Female
  Weight: 93.88 kg

DRUGS (35)
  1. OXYTROL FOR WOMEN [Suspect]
     Indication: MICTURITION URGENCY
     Dosage: UNK, UNKNOWN
     Route: 062
     Dates: start: 20140114
  2. METFORMIN [Concomitant]
     Indication: TYPE 2 DIABETES MELLITUS
     Dosage: UNK, UNKNOWN
  3. NATEGLINIDE [Concomitant]
     Indication: TYPE 2 DIABETES MELLITUS
     Dosage: UNK, UNKNOWN
  4. HUMALOG [Concomitant]
     Indication: TYPE 2 DIABETES MELLITUS
     Dosage: UNK UNK, UNKNOWN
  5. LANTUS [Concomitant]
     Indication: TYPE 2 DIABETES MELLITUS
     Dosage: UNK, UNKNOWN
  6. ALLOPURINOL [Concomitant]
     Indication: GOUT
     Dosage: UNK, UNKNOWN
  7. COLCRYS [Concomitant]
     Indication: GOUT
     Dosage: UNK, UNKNOWN
  8. ALIGN [Concomitant]
     Indication: PRODUCT USED FOR UNKNOWN INDICATION
     Dosage: UNK, UNKNOWN
  9. CENTRUM SILVER [Concomitant]
     Indication: PRODUCT USED FOR UNKNOWN INDICATION
     Dosage: UNK, UNKNOWN
  10. IRON (UNSPECIFIED) [Concomitant]
     Indication: PRODUCT USED FOR UNKNOWN INDICATION
     Dosage: UNK, UNKNOWN
  11. VITAMINS (UNSPECIFIED) [Concomitant]
     Indication: PRODUCT USED FOR UNKNOWN INDICATION
     Dosage: UNK, UNKNOWN
  12. CRESTOR [Concomitant]
     Indication: BLOOD CHOLESTEROL INCREASED
     Dosage: UNK, UNKNOWN
  13. DIOVAN [Concomitant]
     Indication: HYPERTENSION
     Dosage: UNK, UNKNOWN
  14. NORCO [Concomitant]
     Indication: PAIN
     Dosage: UNK, UNKNOWN
  15. LAMOTRIGINE [Concomitant]
     Indication: DEPRESSION
     Dosage: UNK, UNKNOWN
  16. LAMOTRIGINE [Concomitant]
     Indication: ANXIETY
  17. TRAZODONE HYDROCHLORIDE [Concomitant]
     Indication: DEPRESSION
     Dosage: UNK, UNKNOWN
  18. TRAZODONE HYDROCHLORIDE [Concomitant]
     Indication: ANXIETY
  19. VENLAFAXINE HYDROCHLORIDE [Concomitant]
     Indication: DEPRESSION
     Dosage: UNK, UNKNOWN
  20. VENLAFAXINE HYDROCHLORIDE [Concomitant]
     Indication: ANXIETY
  21. LINZESS [Concomitant]
     Indication: IMPAIRED GASTRIC EMPTYING
     Dosage: UNK, UNKNOWN
  22. LINZESS [Concomitant]
     Indication: GASTROOESOPHAGEAL REFLUX DISEASE
  23. LINZESS [Concomitant]
     Indication: IRRITABLE BOWEL SYNDROME
  24. PANTOPRAZOLE [Concomitant]
     Indication: IMPAIRED GASTRIC EMPTYING
     Dosage: UNK, UNKNOWN
  25. PANTOPRAZOLE [Concomitant]
     Indication: GASTROOESOPHAGEAL REFLUX DISEASE
  26. PANTOPRAZOLE [Concomitant]
     Indication: IRRITABLE BOWEL SYNDROME
  27. RANITIDINE [Concomitant]
     Indication: IMPAIRED GASTRIC EMPTYING
     Dosage: UNK, UNKNOWN
  28. RANITIDINE [Concomitant]
     Indication: GASTROOESOPHAGEAL REFLUX DISEASE
  29. RANITIDINE [Concomitant]
     Indication: IRRITABLE BOWEL SYNDROME
  30. LYRICA [Concomitant]
     Indication: FIBROMYALGIA
     Dosage: UNK, UNKNOWN
  31. SYNTHROID [Concomitant]
     Indication: HYPOTHYROIDISM
     Dosage: UNK, UNKNOWN
  32. DORZOLAMIDE HYDROCHLORIDE (+) TIMOLOL MALEATE [Concomitant]
     Indication: GLAUCOMA
     Dosage: UNK, UNKNOWN
  33. ZIOPTAN [Concomitant]
     Indication: GLAUCOMA
     Dosage: UNK, UNKNOWN
  34. RESTASIS [Concomitant]
     Indication: DRY EYE
     Dosage: UNK, UNKNOWN
  35. SYSTANE GELDROPS [Concomitant]
     Indication: DRY EYE

REACTIONS (4)
  - Application site discolouration [Unknown]
  - Drug administered at inappropriate site [Unknown]
  - Off label use [Unknown]
  - Product adhesion issue [Unknown]
